FAERS Safety Report 7556629-5 (Version None)
Quarter: 2011Q2

REPORT INFORMATION
  Report Type: 
  Country: None (occurrence: None)
  Receive Date: 20110616
  Receipt Date: 20110616
  Transmission Date: 20111010
  Serious: Yes (Death, Hospitalization)
  Sender: FDA-Public Use
  Company Number: None

PATIENT
  Sex: Male
  Weight: 124.1 kg

DRUGS (1)
  1. TOPOTECAN [Suspect]
     Dosage: 9.6 MG
     Dates: end: 20110524

REACTIONS (5)
  - SOMNOLENCE [None]
  - LETHARGY [None]
  - PLATELET COUNT DECREASED [None]
  - RENAL FAILURE [None]
  - SEDATION [None]
